FAERS Safety Report 22069306 (Version 1)
Quarter: 2023Q1

REPORT INFORMATION
  Report Type: Spontaneous
  Country: CA (occurrence: CA)
  Receive Date: 20230307
  Receipt Date: 20230307
  Transmission Date: 20230418
  Serious: Yes (Other)
  Sender: FDA-Public Use
  Company Number: CA-002147023-NVSC2023CA047121

PATIENT
  Age: 28 Year
  Sex: Female

DRUGS (2)
  1. METHOTREXATE [Suspect]
     Active Substance: METHOTREXATE
     Indication: Crohn^s disease
     Dosage: 12.5 MG, QW (THERAPY DURATION: 10 YEARS)
     Route: 065
  2. REMICADE [Concomitant]
     Active Substance: INFLIXIMAB
     Indication: Crohn^s disease
     Dosage: 400 MG (DOSAGE FORM: POWDER FOR SOLUTION INTRAVENOUS, FREQUENCY: CYCLICAL)
     Route: 042

REACTIONS (4)
  - Fistula inflammation [Unknown]
  - Infected fistula [Unknown]
  - Intentional product misuse [Unknown]
  - Off label use [Unknown]
